FAERS Safety Report 8365859-4 (Version None)
Quarter: 2012Q2

REPORT INFORMATION
  Report Type: 
  Country: None (occurrence: None)
  Receive Date: 20120515
  Receipt Date: 20120430
  Transmission Date: 20120825
  Serious: Yes (Hospitalization, Other)
  Sender: FDA-Public Use
  Company Number: DEU-2012-10083

PATIENT
  Sex: Female
  Weight: 54 kg

DRUGS (43)
  1. SAMSCA [Suspect]
     Indication: HYPONATRAEMIA
     Dosage: 15 MG MILLIGRAM(S), DAILY DOSE, ORAL
     Route: 048
     Dates: start: 20120414, end: 20120414
  2. SAMSCA [Suspect]
     Indication: HYPONATRAEMIA
     Dosage: 15 MG MILLIGRAM(S), DAILY DOSE, ORAL
     Route: 048
     Dates: start: 20120202, end: 20120202
  3. SAMSCA [Suspect]
     Indication: HYPONATRAEMIA
     Dosage: 15 MG MILLIGRAM(S), DAILY DOSE, ORAL
     Route: 048
     Dates: start: 20120222, end: 20120222
  4. SAMSCA [Suspect]
     Indication: HYPONATRAEMIA
     Dosage: 15 MG MILLIGRAM(S), DAILY DOSE, ORAL
     Route: 048
     Dates: start: 20120412, end: 20120412
  5. SAMSCA [Suspect]
     Indication: HYPONATRAEMIA
     Dosage: 15 MG MILLIGRAM(S), DAILY DOSE, ORAL
     Route: 048
     Dates: start: 20111221, end: 20111221
  6. SAMSCA [Suspect]
     Indication: HYPONATRAEMIA
     Dosage: 15 MG MILLIGRAM(S), DAILY DOSE, ORAL
     Route: 048
     Dates: start: 20120330, end: 20120408
  7. SAMSCA [Suspect]
     Indication: HYPONATRAEMIA
     Dosage: 15 MG MILLIGRAM(S), DAILY DOSE, ORAL
     Route: 048
     Dates: start: 20120417, end: 20120418
  8. SAMSCA [Suspect]
     Indication: HYPONATRAEMIA
     Dosage: 15 MG MILLIGRAM(S), DAILY DOSE, ORAL
     Route: 048
     Dates: start: 20120420, end: 20120421
  9. SAMSCA [Suspect]
     Indication: HYPONATRAEMIA
     Dosage: 15 MG MILLIGRAM(S), DAILY DOSE, ORAL
     Route: 048
     Dates: start: 20120117, end: 20120117
  10. SAMSCA [Suspect]
     Indication: HYPONATRAEMIA
     Dosage: 15 MG MILLIGRAM(S), DAILY DOSE, ORAL
     Route: 048
     Dates: start: 20120228, end: 20120326
  11. SAMSCA [Suspect]
     Indication: HYPONATRAEMIA
     Dosage: 15 MG MILLIGRAM(S), DAILY DOSE, ORAL
     Route: 048
     Dates: start: 20120109, end: 20120109
  12. SAMSCA [Suspect]
     Indication: HYPONATRAEMIA
     Dosage: 15 MG MILLIGRAM(S), DAILY DOSE, ORAL
     Route: 048
     Dates: start: 20120423
  13. FENOFIBRATE [Concomitant]
  14. OFRAN (ONDANSETRON) [Concomitant]
  15. DEXAMETHASONE SODIUM POSPHATE [Concomitant]
  16. DIMENHYDRINATE [Concomitant]
  17. GRANISETRON (GRANISETRON HYDROCHLORIDE) [Concomitant]
  18. CLEMASTINE FUMARATE [Concomitant]
  19. NACI (NACL) [Concomitant]
  20. NULYTELY [Concomitant]
  21. METOPROLOL SUCCINATE [Concomitant]
  22. LEVOTHYROXINE SODIUM [Concomitant]
  23. RANITIDINE HYDROCHLORIDE [Concomitant]
  24. CLEMASTINE FUMARATE [Concomitant]
  25. BEZAFIBRAT (BEZAFIBRATE) [Concomitant]
  26. PREDNISOLON (PREDNISOLONE SODIUM SUCCINATE) [Concomitant]
  27. RIOPAN (MAGALDRATE) [Concomitant]
  28. EMEND [Concomitant]
  29. ETOPOSIDE [Concomitant]
  30. FRAXIPARIN (NADRPARIN CALCIUM) [Concomitant]
  31. BUSCOPAN (HYOSCINE HUTYLBROMIDE) [Concomitant]
  32. METOCLOPRAMIDE [Concomitant]
  33. VERGENTAN (ALIZAPRIDE HYDROCHLORIDE) [Concomitant]
  34. ATACAND [Concomitant]
  35. METOCLOPRAMIDE HYDROCHLORIDE [Concomitant]
  36. NOVALGIN (METAMIZOLE SODIUM) [Concomitant]
  37. SALINE (SALINE) [Concomitant]
  38. DIMENHYDRINATE [Concomitant]
  39. CARBOPLATIN [Concomitant]
  40. RANITIDINE HYDROCHLORIDE [Concomitant]
  41. PANTOPRAZOLE SODIUM [Concomitant]
  42. HALDOL [Concomitant]
  43. PANTOPRAZOLE SODIUM [Concomitant]

REACTIONS (6)
  - NAUSEA [None]
  - HYPONATRAEMIA [None]
  - VOMITING [None]
  - GENERAL PHYSICAL HEALTH DETERIORATION [None]
  - THIRST [None]
  - RAPID CORRECTION OF HYPONATRAEMIA [None]
